FAERS Safety Report 20602944 (Version 1)
Quarter: 2022Q1

REPORT INFORMATION
  Report Type: Report from Study
  Country: US (occurrence: US)
  Receive Date: 20220316
  Receipt Date: 20220316
  Transmission Date: 20220424
  Serious: Yes (Hospitalization)
  Sender: FDA-Public Use
  Company Number: US-ALLERGAN-2208553US

PATIENT
  Sex: Female

DRUGS (2)
  1. CARIPRAZINE HYDROCHLORIDE [Suspect]
     Active Substance: CARIPRAZINE HYDROCHLORIDE
     Indication: Product used for unknown indication
     Dosage: 3 MG
  2. INGREZZA [Concomitant]
     Active Substance: VALBENAZINE
     Dosage: RECENTLY

REACTIONS (3)
  - Confusional state [Not Recovered/Not Resolved]
  - Malaise [Not Recovered/Not Resolved]
  - Cognitive disorder [Not Recovered/Not Resolved]
